FAERS Safety Report 8136401-8 (Version None)
Quarter: 2012Q1

REPORT INFORMATION
  Report Type: 
  Country: None (occurrence: None)
  Receive Date: 20120214
  Receipt Date: 20120203
  Transmission Date: 20120608
  Serious: Yes (Hospitalization)
  Sender: FDA-Public Use
  Company Number: US-ELI_LILLY_AND_COMPANY-US201006002846

PATIENT
  Sex: Female
  Weight: 68.481 kg

DRUGS (16)
  1. FORTEO [Suspect]
     Dosage: 20 UG, QD
     Route: 058
  2. VITAMIN TAB [Concomitant]
     Dosage: UNK, DAILY
  3. VITAMIN D [Concomitant]
     Dosage: 1000 MG, DAILY
  4. FORTEO [Suspect]
     Indication: OSTEOPOROSIS
     Dosage: 20 UG, QD
     Route: 058
     Dates: end: 20111211
  5. FORTEO [Suspect]
     Dosage: 20 UG, QD
     Route: 058
     Dates: start: 20100709
  6. FORTEO [Suspect]
     Dosage: 20 UG, QD
     Route: 058
  7. CALCIUM [Concomitant]
     Dosage: 600 MG, DAILY
  8. MECLIZINE [Concomitant]
     Indication: VERTIGO
  9. VITAMIN D [Concomitant]
     Dosage: 4000 IU, QD
  10. FORTEO [Suspect]
     Dosage: 20 UG, QD
     Route: 058
  11. MULTI-VITAMIN [Concomitant]
  12. FORTEO [Suspect]
     Dosage: 20 UG, QD
     Route: 058
     Dates: end: 20111211
  13. GLUCOSAMINE [Concomitant]
     Dosage: 1500 U, QD
  14. VITAMIN D [Concomitant]
     Indication: VITAMIN D DECREASED
     Dosage: 1000 U, DAILY
  15. FORTEO [Suspect]
     Dosage: 20 UG, QD
     Route: 058
  16. CALCIUM W/VITAMIN D NOS [Concomitant]

REACTIONS (18)
  - GAIT DISTURBANCE [None]
  - OSTEOPOROSIS [None]
  - CHEST PAIN [None]
  - NAUSEA [None]
  - DEPRESSED MOOD [None]
  - BACK PAIN [None]
  - OEDEMA PERIPHERAL [None]
  - VERTIGO [None]
  - ABASIA [None]
  - INJECTION SITE HAEMORRHAGE [None]
  - PANCREATIC DUCT DILATATION [None]
  - RENAL CYST [None]
  - PAIN IN EXTREMITY [None]
  - MUSCLE DISORDER [None]
  - SOMNOLENCE [None]
  - DIZZINESS [None]
  - INJECTION SITE HAEMATOMA [None]
  - DYSPEPSIA [None]
